FAERS Safety Report 9159820 (Version 1)
Quarter: 2013Q1

REPORT INFORMATION
  Report Type: Spontaneous
  Country: FR (occurrence: None)
  Receive Date: 20130220
  Receipt Date: 20130220
  Transmission Date: 20140127
  Serious: Yes (Hospitalization)
  Sender: FDA-Public Use
  Company Number: SYM-2013-00511

PATIENT
  Age: 80 Year
  Sex: Female

DRUGS (3)
  1. FLAGYL (METRONIDAZOLE)(500 MG, UNKNOWN)(METRONIDAZOLE) [Suspect]
     Indication: PRODUCT USED FOR UNKNOWN INDICATION
     Dosage: 500 MG 3X PER DAY (TOTAL 1500 MG).
     Route: 048
     Dates: start: 20130109, end: 20130110
  2. CEFOTAXIME (CEFOTAXIME)(2 GM, UNKNOWN)(CEFOTAXIME) [Suspect]
     Indication: PRODUCT USED FOR UNKNOWN INDICATION
     Dosage: 2 GM DOSES THREE TIMES PER DAY (TOTAL 6 GM).
     Route: 048
     Dates: start: 20130109, end: 20130110
  3. TAZOCILLINE (PIP/TAZO)(2 GM)(PIPERACILLIN SODIUM, TAZOBACTAM SODIUM) [Suspect]
     Indication: PRODUCT USED FOR UNKNOWN INDICATION
     Dosage: 2 GM DOSES PER DAY (TOTAL 6 GM).
     Route: 048
     Dates: start: 20130110, end: 20130110

REACTIONS (2)
  - Rash maculo-papular [None]
  - Pruritus [None]
